FAERS Safety Report 5371818-6 (Version None)
Quarter: 2007Q2

REPORT INFORMATION
  Report Type: 
  Country: None (occurrence: None)
  Receive Date: 20070627
  Receipt Date: 20070618
  Transmission Date: 20071010
  Serious: Yes (Other)
  Sender: FDA-Public Use
  Company Number: ZA-AVENTIS-200713376GDDC

PATIENT
  Age: 42 Year
  Sex: Female

DRUGS (3)
  1. KETEK [Suspect]
     Indication: CHRONIC SINUSITIS
     Dosage: DOSE QUANTITY: 2
     Route: 048
     Dates: start: 20070316, end: 20070320
  2. LENTOGESIC                         /01351301/ [Concomitant]
     Dosage: DOSE: 2 TDS (30)
     Route: 048
  3. PREDNISONE TAB [Concomitant]
     Dosage: DOSE QUANTITY: 8
     Route: 048

REACTIONS (3)
  - BLINDNESS [None]
  - BLINDNESS TRANSIENT [None]
  - VISUAL FIELD DEFECT [None]
